FAERS Safety Report 4412177-2 (Version None)
Quarter: 2004Q2

REPORT INFORMATION
  Report Type: 
  Country: None (occurrence: None)
  Receive Date: 20040630
  Receipt Date: 20040510
  Transmission Date: 20050107
  Serious: No
  Sender: FDA-Public Use
  Company Number: 04P-163-0260109-00

PATIENT
  Sex: Female
  Weight: 99.7913 kg

DRUGS (6)
  1. HUMIRA [Suspect]
     Indication: RHEUMATOID ARTHRITIS
     Dosage: 40 MG, 1 IN 2 WK, SUBCUTANEOUS
     Route: 058
     Dates: start: 20040317
  2. LOTREL [Concomitant]
  3. IBUPROFEN [Concomitant]
  4. TRAMADOL HYDROCHLORIDE [Concomitant]
  5. PREDNISONE [Concomitant]
  6. CALCIUM WITH VITAMIN D [Concomitant]

REACTIONS (2)
  - CONDITION AGGRAVATED [None]
  - RASH [None]
